FAERS Safety Report 5084273-0 (Version None)
Quarter: 2006Q3

REPORT INFORMATION
  Report Type: 
  Country: None (occurrence: None)
  Receive Date: 20060821
  Receipt Date: 20060811
  Transmission Date: 20061208
  Serious: Yes (Hospitalization)
  Sender: FDA-Public Use
  Company Number: US-AMGEN-US189677

PATIENT

DRUGS (1)
  1. NEULASTA [Suspect]
     Indication: CHEMOTHERAPY
     Route: 065

REACTIONS (1)
  - CHEST PAIN [None]
